FAERS Safety Report 5380966-6 (Version None)
Quarter: 2007Q3

REPORT INFORMATION
  Report Type: 
  Country: None (occurrence: None)
  Receive Date: 20070706
  Receipt Date: 20070629
  Transmission Date: 20080115
  Serious: Yes (Other)
  Sender: FDA-Public Use
  Company Number: IE-BRISTOL-MYERS SQUIBB COMPANY-13836119

PATIENT
  Age: 46 Year
  Sex: Female

DRUGS (6)
  1. GLUCOPHAGE [Suspect]
     Indication: DIABETES MELLITUS
  2. PHENOBARBITAL TAB [Suspect]
     Indication: EPILEPSY
  3. CRESTOR [Suspect]
     Route: 048
  4. TRITACE [Suspect]
  5. CENTYL [Suspect]
     Indication: HYPERTENSION
     Route: 048
  6. DIAMICRON [Suspect]
     Indication: DIABETES MELLITUS

REACTIONS (2)
  - BLOOD CHOLESTEROL INCREASED [None]
  - BLOOD TRIGLYCERIDES INCREASED [None]
